FAERS Safety Report 8187917-X (Version None)
Quarter: 2012Q1

REPORT INFORMATION
  Report Type: 
  Country: None (occurrence: None)
  Receive Date: 20120306
  Receipt Date: 20120229
  Transmission Date: 20120608
  Serious: Yes (Other)
  Sender: FDA-Public Use
  Company Number: US-GLAXOSMITHKLINE-A0967954A

PATIENT
  Age: 72 Year
  Sex: Male

DRUGS (4)
  1. ADVAIR DISKUS 100/50 [Suspect]
     Indication: CHRONIC OBSTRUCTIVE PULMONARY DISEASE
     Dosage: 2PUFF TWICE PER DAY
     Route: 055
  2. ADVAIR DISKUS 100/50 [Suspect]
     Route: 055
  3. FLOVENT [Suspect]
     Indication: CHRONIC OBSTRUCTIVE PULMONARY DISEASE
     Route: 055
  4. THEOPHYLLINE [Concomitant]

REACTIONS (8)
  - CHOKING [None]
  - SPUTUM INCREASED [None]
  - DYSGEUSIA [None]
  - SLEEP DISORDER [None]
  - DYSPNOEA [None]
  - DRUG INEFFECTIVE [None]
  - DRY MOUTH [None]
  - OVERDOSE [None]
